FAERS Safety Report 13835517 (Version 2)
Quarter: 2020Q4

REPORT INFORMATION
  Report Type: Report from Study
  Country: US (occurrence: US)
  Receive Date: 20170804
  Receipt Date: 20201013
  Transmission Date: 20210113
  Serious: Yes (Other)
  Sender: FDA-Public Use
  Company Number: US-AMGEN-USASL2017115780

PATIENT
  Sex: Female

DRUGS (2)
  1. ENBREL [Suspect]
     Active Substance: ETANERCEPT
     Indication: PSORIATIC ARTHROPATHY
     Dosage: UNK
     Route: 065
  2. ENBREL [Suspect]
     Active Substance: ETANERCEPT
     Dosage: 50 MILLIGRAM, QWK
     Route: 065

REACTIONS (6)
  - Off label use [Unknown]
  - Therapeutic product effect incomplete [Unknown]
  - Injection site pain [Not Recovered/Not Resolved]
  - Psoriatic arthropathy [Unknown]
  - Drug ineffective [Unknown]
  - Nasal congestion [Not Recovered/Not Resolved]
